FAERS Safety Report 5697685-9 (Version None)
Quarter: 2008Q2

REPORT INFORMATION
  Report Type: 
  Country: None (occurrence: None)
  Receive Date: 20080408
  Receipt Date: 20080401
  Transmission Date: 20081010
  Serious: Yes (Hospitalization)
  Sender: FDA-Public Use
  Company Number: A0718674A

PATIENT
  Age: 73 Year
  Sex: Male

DRUGS (6)
  1. CARVEDILOL [Suspect]
     Indication: HYPERTENSION
     Dosage: 25MG TWICE PER DAY
     Route: 048
     Dates: start: 20060901, end: 20080315
  2. COREG CR [Suspect]
     Indication: HYPERTENSION
     Dosage: 40MG PER DAY
     Route: 048
     Dates: start: 20080316
  3. CLONIDINE HCL [Concomitant]
  4. ALLOPURINOL [Concomitant]
  5. LASIX [Concomitant]
  6. PRILOSEC [Concomitant]

REACTIONS (7)
  - ARTERIAL DISORDER [None]
  - BLOOD PRESSURE INCREASED [None]
  - HYPERTENSION [None]
  - HYPOAESTHESIA ORAL [None]
  - HYPOTENSION [None]
  - OEDEMA PERIPHERAL [None]
  - PARAESTHESIA ORAL [None]
